FAERS Safety Report 7503237-8 (Version None)
Quarter: 2011Q2

REPORT INFORMATION
  Report Type: 
  Country: None (occurrence: None)
  Receive Date: 20110525
  Receipt Date: 20100707
  Transmission Date: 20111010
  Serious: No
  Sender: FDA-Public Use
  Company Number: A0868954A

PATIENT
  Age: 67 Year
  Sex: Female

DRUGS (5)
  1. UNSPECIFIED MEDICATION [Concomitant]
  2. SPIRONOLACTONE [Concomitant]
  3. LOSARTAN POTASSIUM [Concomitant]
  4. BACTROBAN [Suspect]
     Indication: EPISTAXIS
     Route: 045
     Dates: start: 20100505
  5. RANITIDINE [Concomitant]

REACTIONS (2)
  - NASAL OEDEMA [None]
  - ILL-DEFINED DISORDER [None]
